FAERS Safety Report 12137385 (Version 2)
Quarter: 2016Q1

REPORT INFORMATION
  Report Type: Report from Study
  Country: IT (occurrence: IT)
  Receive Date: 20160302
  Receipt Date: 20160330
  Transmission Date: 20160526
  Serious: Yes (Death, Life-Threatening, Hospitalization, Other)
  Sender: FDA-Public Use
  Company Number: IT-ASTELLAS-2016US007672

PATIENT
  Age: 44 Year
  Sex: Female

DRUGS (1)
  1. ERLOTINIB [Suspect]
     Active Substance: ERLOTINIB
     Indication: LUNG ADENOCARCINOMA METASTATIC
     Dosage: 150 MG, EVERY 24 HOURS ON DAYS 1 TO 28 OF A 28 DAY CYCLE (DAILY)
     Route: 048
     Dates: start: 20151210

REACTIONS (2)
  - Hyperbilirubinaemia [Not Recovered/Not Resolved]
  - Malignant neoplasm progression [Fatal]

NARRATIVE: CASE EVENT DATE: 20160203
